FAERS Safety Report 25140123 (Version 1)
Quarter: 2025Q1

REPORT INFORMATION
  Report Type: Spontaneous
  Country: US (occurrence: US)
  Receive Date: 20250331
  Receipt Date: 20250331
  Transmission Date: 20250408
  Serious: No
  Sender: MYLAN
  Company Number: US-MYLANLABS-2025M1024851

PATIENT
  Sex: Female

DRUGS (3)
  1. LEVOTHYROXINE SODIUM [Suspect]
     Active Substance: LEVOTHYROXINE SODIUM
     Indication: Thyroid disorder
     Dosage: 112 MICROGRAM, QD (ONCE A DAY)
     Dates: start: 20250121
  2. VITAMIN D [Concomitant]
     Active Substance: VITAMIN D NOS
     Dosage: 1 DOSAGE FORM, PM (1 IN THE EVENING)
  3. IRON [Concomitant]
     Active Substance: IRON
     Dosage: 1 DOSAGE FORM, PM (1 IN THE EVENING)

REACTIONS (3)
  - Insomnia [Unknown]
  - Alopecia [Unknown]
  - Feeling abnormal [Unknown]
